FAERS Safety Report 14732905 (Version 2)
Quarter: 2018Q2

REPORT INFORMATION
  Report Type: Spontaneous
  Country: JP (occurrence: JP)
  Receive Date: 20180409
  Receipt Date: 20180423
  Transmission Date: 20180711
  Serious: Yes (Other)
  Sender: FDA-Public Use
  Company Number: JP-009507513-1804JPN000180J

PATIENT
  Age: 53 Year
  Sex: Female
  Weight: 53 kg

DRUGS (5)
  1. DESALEX TABLETS 5MG [Suspect]
     Active Substance: DESLORATADINE
     Indication: SEASONAL ALLERGY
     Dosage: 5 MG, QD
     Route: 048
     Dates: start: 20180315, end: 20180326
  2. CEDARTOLEN [Concomitant]
     Indication: SEASONAL ALLERGY
     Dosage: 1 ML, QD
     Route: 060
     Dates: start: 20150928
  3. ALLEGRA [Concomitant]
     Active Substance: FEXOFENADINE HYDROCHLORIDE
     Indication: SEASONAL ALLERGY
     Dosage: UNK
     Route: 048
     Dates: start: 2018, end: 201803
  4. ALLERMIST [Concomitant]
     Active Substance: FLUTICASONE FUROATE
     Indication: SEASONAL ALLERGY
     Dosage: 2 DF, QD
     Route: 045
     Dates: start: 20180318
  5. ALESION [Concomitant]
     Active Substance: EPINASTINE HYDROCHLORIDE
     Indication: SEASONAL ALLERGY
     Dosage: UNK UNK, QID
     Route: 047
     Dates: start: 20180318

REACTIONS (2)
  - Visual field defect [Recovered/Resolved]
  - Thought blocking [Recovered/Resolved]

NARRATIVE: CASE EVENT DATE: 20180326
